FAERS Safety Report 19835215 (Version 2)
Quarter: 2021Q3

REPORT INFORMATION
  Report Type: Report from Study
  Country: US (occurrence: US)
  Receive Date: 20210915
  Receipt Date: 20210916
  Transmission Date: 20211014
  Serious: No
  Sender: FDA-Public Use
  Company Number: US-BAYER-2021-209372

PATIENT

DRUGS (1)
  1. MACROCYCLIC GBCA (MCGBCA) GADOBUTROL [Suspect]
     Active Substance: GADOBUTROL
     Dosage: UNK UNK, ONCE

REACTIONS (2)
  - Contrast media deposition [None]
  - Magnetic resonance imaging head abnormal [None]
